FAERS Safety Report 7012203-0 (Version None)
Quarter: 2010Q3

REPORT INFORMATION
  Report Type: 
  Country: None (occurrence: None)
  Receive Date: 20100924
  Receipt Date: 20100913
  Transmission Date: 20110219
  Serious: Yes (Death, Hospitalization)
  Sender: FDA-Public Use
  Company Number: CA-ELI_LILLY_AND_COMPANY-CA201009003392

PATIENT
  Sex: Male

DRUGS (6)
  1. ZYPREXA [Suspect]
     Indication: SCHIZOPHRENIA
     Dosage: UNK, UNKNOWN
     Route: 065
     Dates: start: 20010501
  2. ZYPREXA [Suspect]
     Dosage: 10 MG, EACH EVENING
     Route: 048
     Dates: start: 20020103
  3. ZOLOFT [Concomitant]
     Indication: SCHIZOPHRENIA
     Dosage: 50 MG, DAILY (1/D)
     Route: 048
     Dates: start: 20030428
  4. ZOLOFT [Concomitant]
     Dosage: 100 MG, DAILY (1/D)
     Route: 048
     Dates: start: 20030101
  5. RISPERIDONE [Concomitant]
     Indication: SCHIZOPHRENIA
  6. CELEXA [Concomitant]
     Indication: SCHIZOPHRENIA

REACTIONS (4)
  - DEHYDRATION [None]
  - DIABETIC KETOACIDOSIS [None]
  - HYPERNATRAEMIA [None]
  - RENAL FAILURE ACUTE [None]
